FAERS Safety Report 10349760 (Version 1)
Quarter: 2014Q3

REPORT INFORMATION
  Report Type: Report from Study
  Country: PT (occurrence: PT)
  Receive Date: 20140730
  Receipt Date: 20140730
  Transmission Date: 20150326
  Serious: Yes (Other)
  Sender: FDA-Public Use
  Company Number: PT-ROCHE-1441963

PATIENT

DRUGS (3)
  1. ZELBORAF [Suspect]
     Active Substance: VEMURAFENIB
     Indication: MALIGNANT MELANOMA
     Route: 065
     Dates: start: 20140128, end: 20140210
  2. ZELBORAF [Suspect]
     Active Substance: VEMURAFENIB
     Route: 065
     Dates: start: 20140303, end: 20140421
  3. ZELBORAF [Suspect]
     Active Substance: VEMURAFENIB
     Route: 065
     Dates: start: 20140428

REACTIONS (5)
  - Nephropathy toxic [Unknown]
  - Dysgeusia [Unknown]
  - Rash [Unknown]
  - Renal impairment [Unknown]
  - Asthenia [Unknown]
